FAERS Safety Report 11055886 (Version 2)
Quarter: 2015Q2

REPORT INFORMATION
  Report Type: Spontaneous
  Country: VN (occurrence: VN)
  Receive Date: 20150422
  Receipt Date: 20150428
  Transmission Date: 20150821
  Serious: Yes (Other)
  Sender: FDA-Public Use
  Company Number: VN-JNJFOC-20150413730

PATIENT
  Age: 59 Year
  Sex: Female

DRUGS (2)
  1. TOPAMAX [Suspect]
     Active Substance: TOPIRAMATE
     Indication: PROCEDURAL PAIN
     Route: 048
     Dates: start: 2014
  2. TOPAMAX [Suspect]
     Active Substance: TOPIRAMATE
     Indication: PROCEDURAL PAIN
     Route: 048

REACTIONS (4)
  - Product counterfeit [Unknown]
  - Product use issue [Unknown]
  - Drug dispensing error [Unknown]
  - VIIth nerve paralysis [Recovered/Resolved]
